FAERS Safety Report 12347179 (Version 2)
Quarter: 2016Q3

REPORT INFORMATION
  Report Type: Not Available
  Country: JP (occurrence: JP)
  Receive Date: 20160509
  Receipt Date: 20160715
  Transmission Date: 20161109
  Serious: No
  Sender: FDA-Public Use
  Company Number: JP-AKORN-30011

PATIENT
  Age: 77 Year
  Sex: Male

DRUGS (1)
  1. ZIOPTAN [Suspect]
     Active Substance: TAFLUPROST

REACTIONS (6)
  - Corneal disorder [Recovered/Resolved]
  - Conjunctivitis [None]
  - Iritis [Recovered/Resolved]
  - Ocular hyperaemia [Unknown]
  - Corneal degeneration [None]
  - Corneal oedema [None]

NARRATIVE: CASE EVENT DATE: 20160404
